FAERS Safety Report 25284042 (Version 2)
Quarter: 2025Q2

REPORT INFORMATION
  Report Type: Spontaneous
  Country: US (occurrence: US)
  Receive Date: 20250508
  Receipt Date: 20250609
  Transmission Date: 20250716
  Serious: No
  Sender: JOHNSON AND JOHNSON
  Company Number: US-JNJFOC-20250500961

PATIENT
  Age: 41 Year
  Sex: Male

DRUGS (1)
  1. TREMFYA [Suspect]
     Active Substance: GUSELKUMAB
     Indication: Psoriatic arthropathy
     Dosage: 100.00 MG/ML
     Route: 058
     Dates: start: 20250501

REACTIONS (3)
  - Device leakage [Not Recovered/Not Resolved]
  - Device failure [Not Recovered/Not Resolved]
  - Product dose omission issue [Not Recovered/Not Resolved]
